FAERS Safety Report 9044754 (Version 1)
Quarter: 2013Q1

REPORT INFORMATION
  Report Type: Spontaneous
  Country: MX (occurrence: MX)
  Receive Date: 20130130
  Receipt Date: 20130130
  Transmission Date: 20140127
  Serious: Yes (Death)
  Sender: FDA-Public Use
  Company Number: MX-ACTELION-A-CH2012-60540

PATIENT
  Age: 18 Year
  Sex: Female
  Weight: 41 kg

DRUGS (2)
  1. TRACLEER [Suspect]
     Indication: PULMONARY ARTERIAL HYPERTENSION
     Dosage: 62.5 MG, BID
     Route: 048
     Dates: start: 20110707, end: 20120928
  2. SILDENAFIL [Concomitant]
     Dosage: 20 MG, BID
     Dates: start: 201007, end: 20111222

REACTIONS (7)
  - Sepsis [Fatal]
  - Pneumonia [Fatal]
  - Pulmonary arterial hypertension [Fatal]
  - Trisomy 21 [Fatal]
  - Heart disease congenital [Fatal]
  - Left ventricular failure [Not Recovered/Not Resolved]
  - Cardiac output decreased [Not Recovered/Not Resolved]
